FAERS Safety Report 18608281 (Version 1)
Quarter: 2020Q4

REPORT INFORMATION
  Report Type: Spontaneous
  Country: US (occurrence: US)
  Receive Date: 20201212
  Receipt Date: 20201212
  Transmission Date: 20210114
  Serious: Yes (Hospitalization, Other)
  Sender: FDA-Public Use
  Company Number: US-MACLEODS PHARMACEUTICALS US LTD-MAC2020029375

PATIENT

DRUGS (2)
  1. TRIAMCINOLONE ACETONIDE 0.1 % CREAM [Suspect]
     Active Substance: TRIAMCINOLONE ACETONIDE
     Indication: PHIMOSIS
     Dosage: UNK UNK, BID, APPLYING A FINGERTIP AMOUNT OF THE CREAM TWICE DAILY TO THE GLANS PENIS
     Route: 061
  2. RITONAVIR. [Interacting]
     Active Substance: RITONAVIR
     Indication: HIV INFECTION
     Dosage: UNK
     Route: 065

REACTIONS (3)
  - Cushing^s syndrome [Unknown]
  - Diabetes mellitus [Unknown]
  - Drug interaction [Unknown]
